FAERS Safety Report 4384801-4 (Version None)
Quarter: 2004Q2

REPORT INFORMATION
  Report Type: 
  Country: None (occurrence: None)
  Receive Date: 20040623
  Receipt Date: 20040623
  Transmission Date: 20050107
  Serious: Yes (Disabling)
  Sender: FDA-Public Use
  Company Number: None

PATIENT
  Age: 45 Year
  Sex: Female
  Weight: 79.8331 kg

DRUGS (2)
  1. LIPITOR [Suspect]
  2. ASPIRIN [Suspect]

REACTIONS (2)
  - MIGRAINE [None]
  - PHARMACEUTICAL PRODUCT COMPLAINT [None]
